FAERS Safety Report 19281937 (Version 1)
Quarter: 2021Q2

REPORT INFORMATION
  Report Type: Spontaneous
  Country: US (occurrence: US)
  Receive Date: 20210521
  Receipt Date: 20210521
  Transmission Date: 20210717
  Serious: No
  Sender: FDA-Public Use
  Company Number: US-JNJFOC-20210526313

PATIENT
  Age: 45 Year
  Sex: Male
  Weight: 149.82 kg

DRUGS (1)
  1. TREMFYA [Suspect]
     Active Substance: GUSELKUMAB
     Indication: PSORIASIS
     Route: 058
     Dates: start: 20210428

REACTIONS (4)
  - Musculoskeletal stiffness [Unknown]
  - Pain in extremity [Unknown]
  - Swelling [Unknown]
  - Arthralgia [Unknown]
